FAERS Safety Report 6545550-7 (Version None)
Quarter: 2010Q1

REPORT INFORMATION
  Report Type: 
  Country: None (occurrence: None)
  Receive Date: 20100121
  Receipt Date: 20100111
  Transmission Date: 20100710
  Serious: Yes (Life-Threatening, Hospitalization, Other)
  Sender: FDA-Public Use
  Company Number: DE-PFIZER INC-2009299222

PATIENT
  Age: 73 Year
  Sex: Male
  Weight: 92 kg

DRUGS (8)
  1. SUTENT [Suspect]
     Indication: METASTATIC RENAL CELL CARCINOMA
     Dosage: 50 MG, 1X/DAY
     Route: 048
     Dates: start: 20091020, end: 20091108
  2. BISOPROLOL [Concomitant]
     Dosage: 10 MG, UNK
  3. LISINOPRIL [Concomitant]
     Dosage: 20 MG, UNK
  4. ALLOPURINOL [Concomitant]
     Dosage: 150 MG, UNK
  5. L-THYROXIN [Concomitant]
     Dosage: 50 MG, UNK
  6. TAMSULOSIN [Concomitant]
     Dosage: 0.4 MG, UNK
  7. HYDROCHLOROTHIAZIDE [Concomitant]
     Dosage: 25 MG, UNK
  8. SINUPRET [Concomitant]
     Dosage: 36 MG, UNK

REACTIONS (1)
  - RENAL FAILURE [None]
